FAERS Safety Report 22597556 (Version 1)
Quarter: 2023Q2

REPORT INFORMATION
  Report Type: Spontaneous
  Country: US (occurrence: US)
  Receive Date: 20230614
  Receipt Date: 20230614
  Transmission Date: 20230722
  Serious: No
  Sender: FDA-Public Use
  Company Number: ENDB23-01863

PATIENT
  Age: 12 Year
  Sex: Male

DRUGS (3)
  1. SUPPRELIN LA [Suspect]
     Active Substance: HISTRELIN ACETATE
     Indication: Adrenogenital syndrome
     Dosage: UNK UNKNOWN, UNKNOWN
     Route: 065
     Dates: start: 20211123
  2. SUPPRELIN LA [Suspect]
     Active Substance: HISTRELIN ACETATE
     Indication: Adrenogenital syndrome
     Dosage: UNK UNKNOWN, UNKNOWN
     Route: 065
     Dates: start: 20211123
  3. ANASTROZOLE [Concomitant]
     Active Substance: ANASTROZOLE
     Indication: Pubertal disorder
     Dosage: UNK UNKNOWN, UNKNOWN
     Route: 065

REACTIONS (4)
  - Retching [Not Recovered/Not Resolved]
  - Vomiting [Not Recovered/Not Resolved]
  - Nausea [Not Recovered/Not Resolved]
  - Off label use [Unknown]

NARRATIVE: CASE EVENT DATE: 20210101
